FAERS Safety Report 10548874 (Version 1)
Quarter: 2014Q4

REPORT INFORMATION
  Report Type: Spontaneous
  Country: TH (occurrence: TH)
  Receive Date: 20141028
  Receipt Date: 20141028
  Transmission Date: 20150529
  Serious: Yes (Death, Hospitalization)
  Sender: FDA-Public Use
  Company Number: TH-ASTELLAS-2014US015873

PATIENT
  Age: 49 Year
  Sex: Female

DRUGS (1)
  1. AMPHOTERICIN B, LIPOSOME [Suspect]
     Active Substance: AMPHOTERICIN B
     Indication: MENINGITIS CRYPTOCOCCAL
     Dosage: UNK, UNKNOWN FREQ.
     Route: 042

REACTIONS (1)
  - Drug ineffective [Fatal]
